FAERS Safety Report 8282225-0 (Version None)
Quarter: 2012Q2

REPORT INFORMATION
  Report Type: 
  Country: None (occurrence: None)
  Receive Date: 20120413
  Receipt Date: 20120404
  Transmission Date: 20120825
  Serious: Yes (Death)
  Sender: FDA-Public Use
  Company Number: US-PFIZER INC-2011311471

PATIENT
  Age: 55 Year
  Sex: Male

DRUGS (5)
  1. DIAZEPAM [Suspect]
     Dosage: UNK
  2. OXYMORPHONE [Suspect]
     Dosage: UNK
  3. MEPROBAMATE [Suspect]
     Dosage: UNK
  4. CARISOPRODOL [Suspect]
     Dosage: UNK
  5. OXYCODONE HYDROCHLORIDE [Suspect]
     Dosage: UNK
     Route: 048

REACTIONS (4)
  - RESPIRATORY ARREST [None]
  - DRUG ABUSE [None]
  - TOXICITY TO VARIOUS AGENTS [None]
  - CARDIAC ARREST [None]
